FAERS Safety Report 8290363-1 (Version None)
Quarter: 2012Q2

REPORT INFORMATION
  Report Type: 
  Country: None (occurrence: None)
  Receive Date: 20120417
  Receipt Date: 20120404
  Transmission Date: 20120825
  Serious: Yes (Other)
  Sender: FDA-Public Use
  Company Number: DE-ELI_LILLY_AND_COMPANY-DE201204001489

PATIENT
  Age: 53 Year
  Sex: Female

DRUGS (6)
  1. VALORON [Concomitant]
  2. CYMBALTA [Suspect]
     Indication: DEPRESSION
     Dosage: 30 MG, UNK
     Route: 048
     Dates: start: 20100101
  3. METAMIZOLE [Concomitant]
  4. LEVOTHYROXINE SODIUM [Concomitant]
  5. RISPERIDONE [Concomitant]
  6. PANTOZAL [Concomitant]

REACTIONS (1)
  - GAMMA-GLUTAMYLTRANSFERASE INCREASED [None]
